FAERS Safety Report 7556621-0 (Version None)
Quarter: 2011Q2

REPORT INFORMATION
  Report Type: 
  Country: None (occurrence: None)
  Receive Date: 20110616
  Receipt Date: 20110616
  Transmission Date: 20111010
  Serious: Yes (Hospitalization)
  Sender: FDA-Public Use
  Company Number: None

PATIENT
  Age: 57 Year
  Sex: Male
  Weight: 102.5 kg

DRUGS (2)
  1. LITHIUM CARBONATE [Suspect]
     Indication: SCHIZOPHRENIA, PARANOID TYPE
     Dosage: 900 MG BID PO
     Route: 048
     Dates: start: 20100312, end: 20110505
  2. VARENICLINE [Suspect]
     Indication: SMOKING CESSATION THERAPY
     Dosage: 1 MG BID PO
     Route: 048
     Dates: start: 20110407, end: 20110505

REACTIONS (2)
  - MENTAL STATUS CHANGES [None]
  - CONFUSIONAL STATE [None]
